FAERS Safety Report 6991897-X (Version None)
Quarter: 2010Q3

REPORT INFORMATION
  Report Type: 
  Country: None (occurrence: None)
  Receive Date: 20100917
  Receipt Date: 20100907
  Transmission Date: 20110219
  Serious: Yes (Hospitalization, Disabling, Other)
  Sender: FDA-Public Use
  Company Number: NO-PFIZER INC-2010086990

PATIENT
  Age: 44 Year
  Sex: Male

DRUGS (4)
  1. LYRICA [Suspect]
     Indication: SPINAL CORD INJURY
     Dosage: 300 MG, 2X/DAY
     Dates: start: 20070801, end: 20080101
  2. LYRICA [Suspect]
     Dosage: 25 MG, 2X/DAY
     Dates: start: 20100601, end: 20100601
  3. TRIMETHOPRIM [Concomitant]
     Indication: INFECTION PROPHYLAXIS
     Dosage: 1X1
  4. TOLTERODINE TARTRATE [Concomitant]
     Indication: HYPERTONIC BLADDER
     Dosage: 4 MG X 3 (IN THE MORNING)

REACTIONS (3)
  - FATIGUE [None]
  - PAIN [None]
  - TRIGEMINAL NEURALGIA [None]
